FAERS Safety Report 8193265-4 (Version None)
Quarter: 2012Q1

REPORT INFORMATION
  Report Type: 
  Country: None (occurrence: None)
  Receive Date: 20120308
  Receipt Date: 20120305
  Transmission Date: 20120608
  Serious: Yes (Death, Hospitalization)
  Sender: FDA-Public Use
  Company Number: US-CELGENEUS-163-21880-12030525

PATIENT
  Age: 71 Year
  Sex: Male

DRUGS (7)
  1. METOPROLOL SUCCINATE [Concomitant]
     Route: 065
  2. REVLIMID [Suspect]
     Indication: MULTIPLE MYELOMA
     Dosage: 10 MILLIGRAM
     Route: 048
     Dates: start: 20110920, end: 20111004
  3. DEXAMETHASONE [Concomitant]
     Route: 065
  4. AMIDARONE [Concomitant]
     Route: 065
  5. DOCUSATE SODIUM [Concomitant]
     Route: 065
  6. NOVOLIN 70/30 [Concomitant]
     Route: 065
  7. FLUOXETINE HCL [Concomitant]
     Route: 065

REACTIONS (6)
  - SEPSIS [None]
  - HAEMATURIA [None]
  - DEATH [None]
  - THROMBOCYTOPENIA [None]
  - PANCYTOPENIA [None]
  - HEPATIC ENCEPHALOPATHY [None]
